FAERS Safety Report 14795554 (Version 3)
Quarter: 2019Q1

REPORT INFORMATION
  Report Type: Not Available
  Country: US (occurrence: US)
  Receive Date: 20180423
  Receipt Date: 20190318
  Transmission Date: 20190417
  Serious: No
  Sender: FDA-Public Use
  Company Number: US-NEUROCRINE BIOSCIENCES INC.-2018NBI00079

PATIENT
  Age: 37 Year
  Sex: Male

DRUGS (5)
  1. INGREZZA [Suspect]
     Active Substance: VALBENAZINE
     Indication: TARDIVE DYSKINESIA
     Route: 048
  2. CARBAMAZEPINE. [Interacting]
     Active Substance: CARBAMAZEPINE
     Indication: PRODUCT USED FOR UNKNOWN INDICATION
  3. INGREZZA [Interacting]
     Active Substance: VALBENAZINE
     Dosage: 80 MG QAM + INGREZZA 40 MG QPM AS PRESCRIBED
     Route: 048
     Dates: start: 20180709
  4. INGREZZA [Interacting]
     Active Substance: VALBENAZINE
     Route: 048
  5. SYNTHROID [Concomitant]
     Active Substance: LEVOTHYROXINE SODIUM

REACTIONS (4)
  - Fatigue [Unknown]
  - Off label use [Unknown]
  - Inhibitory drug interaction [Unknown]
  - Drug effect decreased [None]

NARRATIVE: CASE EVENT DATE: 20180709
